FAERS Safety Report 13299644 (Version 3)
Quarter: 2017Q2

REPORT INFORMATION
  Report Type: Report from Study
  Country: US (occurrence: US)
  Receive Date: 20170306
  Receipt Date: 20170413
  Transmission Date: 20170830
  Serious: Yes (Hospitalization)
  Sender: FDA-Public Use
  Company Number: US-SEATTLE GENETICS-2017SGN00392

PATIENT

DRUGS (47)
  1. BRENTUXIMAB VEDOTIN [Suspect]
     Active Substance: BRENTUXIMAB VEDOTIN
     Indication: DIFFUSE LARGE B-CELL LYMPHOMA
     Dosage: 1.8 MG/KG, Q21D
     Route: 042
     Dates: start: 20161122, end: 20170124
  2. ONDANSETRON [Concomitant]
     Active Substance: ONDANSETRON
     Indication: NAUSEA
     Dosage: UNK
     Dates: start: 20170106
  3. LOMOTIL [Concomitant]
     Active Substance: ATROPINE SULFATE\DIPHENOXYLATE HYDROCHLORIDE
     Indication: EMERGENCY CARE
     Dosage: UNK
     Dates: start: 20170219, end: 20170220
  4. ZOSYN [Concomitant]
     Active Substance: PIPERACILLIN SODIUM\TAZOBACTAM SODIUM
     Indication: PNEUMONIA VIRAL
     Dosage: UNK
     Dates: start: 20170207, end: 20170213
  5. LOVENOX [Concomitant]
     Active Substance: ENOXAPARIN SODIUM
     Indication: EMERGENCY CARE
     Dosage: UNK
     Dates: start: 20170218, end: 20170222
  6. SODIUM CHLORIDE. [Concomitant]
     Active Substance: SODIUM CHLORIDE
     Indication: EMERGENCY CARE
     Dosage: UNK
     Dates: start: 20170218, end: 20170218
  7. TRAZODONE [Concomitant]
     Active Substance: TRAZODONE HYDROCHLORIDE
     Indication: INSOMNIA
     Dosage: UNK
     Dates: start: 20161101
  8. FLOMAX [Concomitant]
     Active Substance: TAMSULOSIN HYDROCHLORIDE
     Dosage: UNK
     Dates: start: 20170219, end: 20170221
  9. LOVENOX [Concomitant]
     Active Substance: ENOXAPARIN SODIUM
     Dosage: UNK
     Dates: start: 20170224, end: 20170224
  10. BENDAMUSTINE HYDROCHLORIDE. [Suspect]
     Active Substance: BENDAMUSTINE HYDROCHLORIDE
     Indication: DIFFUSE LARGE B-CELL LYMPHOMA
     Dosage: 90 MG/M2, Q21D
     Route: 042
     Dates: start: 20161122, end: 20170125
  11. VITAMIN D                          /00107901/ [Concomitant]
     Active Substance: ERGOCALCIFEROL
     Indication: VITAMIN D DEFICIENCY
     Dosage: UNK
     Dates: start: 20170124
  12. MYCOSTATIN [Concomitant]
     Active Substance: NYSTATIN
     Indication: ORAL CANDIDIASIS
     Dosage: UNK
     Dates: start: 20170212, end: 20170213
  13. MYCOSTATIN [Concomitant]
     Active Substance: NYSTATIN
     Indication: EMERGENCY CARE
     Dosage: UNK
     Dates: start: 20170219, end: 20170222
  14. MYCOSTATIN [Concomitant]
     Active Substance: NYSTATIN
     Dosage: UNK
     Dates: start: 20170224, end: 20170224
  15. VANCOCIN [Concomitant]
     Active Substance: VANCOMYCIN HYDROCHLORIDE
     Indication: PNEUMONIA VIRAL
     Dosage: UNK
     Dates: start: 20170208, end: 20170210
  16. K PHOS NEUTRAL [Concomitant]
     Active Substance: POTASSIUM PHOSPHATE, MONOBASIC\SODIUM PHOSPHATE, DIBASIC, ANHYDROUS\SODIUM PHOSPHATE, MONOBASIC, MONOHYDRATE
     Dosage: UNK
     Dates: start: 20170221, end: 20170221
  17. FLOMAX [Concomitant]
     Active Substance: TAMSULOSIN HYDROCHLORIDE
     Indication: BENIGN PROSTATIC HYPERPLASIA
     Dosage: UNK
     Dates: start: 20170222, end: 20170222
  18. MULTIVITAMIN                       /00097801/ [Concomitant]
     Active Substance: VITAMINS
     Indication: EMERGENCY CARE
     Dosage: UNK
     Dates: start: 20170219, end: 20170222
  19. PLASMALYTE A [Concomitant]
     Indication: EMERGENCY CARE
     Dosage: UNK
     Dates: start: 20170218, end: 20170222
  20. LOMOTIL [Concomitant]
     Active Substance: ATROPINE SULFATE\DIPHENOXYLATE HYDROCHLORIDE
     Indication: DIARRHOEA
     Dosage: UNK
     Dates: start: 20170203
  21. K PHOS NEUTRAL [Concomitant]
     Active Substance: POTASSIUM PHOSPHATE, MONOBASIC\SODIUM PHOSPHATE, DIBASIC, ANHYDROUS\SODIUM PHOSPHATE, MONOBASIC, MONOHYDRATE
     Indication: BLOOD PHOSPHORUS DECREASED
     Dosage: UNK
     Dates: start: 20170222, end: 20170222
  22. REMERON [Concomitant]
     Active Substance: MIRTAZAPINE
     Indication: DECREASED APPETITE
     Dosage: UNK
     Dates: start: 20170219, end: 20170222
  23. VITAMIN B12 [Concomitant]
     Active Substance: CYANOCOBALAMIN
     Indication: EMERGENCY CARE
     Dosage: UNK
     Dates: start: 20170219, end: 20170222
  24. MEGESTROL [Concomitant]
     Active Substance: MEGESTROL
     Dosage: UNK
     Dates: start: 20170219, end: 20170222
  25. POTASSIUM PHOSPHATE DIBASIC W/SODIUM [Concomitant]
     Indication: HYPOKALAEMIA
     Dosage: UNK
     Dates: start: 20170212, end: 20170213
  26. SOLU-MEDROL [Concomitant]
     Active Substance: METHYLPREDNISOLONE SODIUM SUCCINATE
     Indication: PNEUMONIA VIRAL
     Dosage: UNK
     Dates: start: 20170208, end: 20170211
  27. GAMUNEX-C [Concomitant]
     Active Substance: HUMAN IMMUNOGLOBULIN G
     Indication: IMMUNODEFICIENCY COMMON VARIABLE
     Dosage: UNK
     Dates: start: 20170220, end: 20170220
  28. REMERON [Concomitant]
     Active Substance: MIRTAZAPINE
     Dosage: UNK
     Dates: start: 20170224, end: 20170224
  29. NOVOLOG [Concomitant]
     Active Substance: INSULIN ASPART
     Dosage: UNK
     Dates: start: 20170224, end: 20170224
  30. ETHYLCHLORIDE [Concomitant]
     Indication: EMERGENCY CARE
     Dosage: UNK
     Dates: start: 20170218, end: 20170218
  31. MEGESTROL [Concomitant]
     Active Substance: MEGESTROL
     Indication: DECREASED APPETITE
     Dosage: UNK
     Dates: start: 20170124
  32. DELTASONE [Concomitant]
     Active Substance: PREDNISONE
     Indication: PNEUMONIA VIRAL
     Dosage: UNK
     Dates: start: 20170213, end: 20170213
  33. DELTASONE [Concomitant]
     Active Substance: PREDNISONE
     Indication: PRODUCT USED FOR UNKNOWN INDICATION
     Dosage: UNK
     Dates: start: 20170219, end: 20170222
  34. POTASSIUM PHOSPHATES [Concomitant]
     Active Substance: POTASSIUM PHOSPHATE, DIBASIC\POTASSIUM PHOSPHATE, MONOBASIC
     Indication: HYPOKALAEMIA
     Dosage: UNK
     Dates: start: 20170212, end: 20170212
  35. POTASSIUM PHOSPHATES [Concomitant]
     Active Substance: POTASSIUM PHOSPHATE, DIBASIC\POTASSIUM PHOSPHATE, MONOBASIC
     Dosage: UNK
     Dates: start: 20170213, end: 20170213
  36. POTASSIUM CHLORIDE. [Concomitant]
     Active Substance: POTASSIUM CHLORIDE
     Indication: HYPOKALAEMIA
     Dosage: UNK
     Dates: start: 20170211, end: 20170211
  37. PROSCAR [Concomitant]
     Active Substance: FINASTERIDE
     Indication: BENIGN PROSTATIC HYPERPLASIA
     Dosage: UNK
     Dates: start: 20170221, end: 20170222
  38. ASPIRIN DC [Concomitant]
     Indication: EMERGENCY CARE
     Dosage: UNK
     Dates: start: 20170221, end: 20170221
  39. PROTONIX [Concomitant]
     Active Substance: PANTOPRAZOLE SODIUM
     Indication: EMERGENCY CARE
     Dosage: UNK
     Dates: start: 20170219, end: 20170222
  40. NOVOLOG [Concomitant]
     Active Substance: INSULIN ASPART
     Indication: EMERGENCY CARE
     Dosage: UNK
     Dates: start: 20170219, end: 20170222
  41. RITUXIMAB [Suspect]
     Active Substance: RITUXIMAB
     Indication: DIFFUSE LARGE B-CELL LYMPHOMA
     Dosage: 375 MG/M2, Q21D
     Route: 042
     Dates: start: 20161123, end: 20170125
  42. PEGFILGRASTIM [Concomitant]
     Active Substance: PEGFILGRASTIM
     Indication: PROPHYLAXIS
     Dosage: UNK
     Dates: start: 20161123
  43. MAGNESIUM SULFATE. [Concomitant]
     Active Substance: MAGNESIUM SULFATE
     Indication: HYPOKALAEMIA
     Dosage: UNK
     Dates: start: 20170221, end: 20170221
  44. PROHANCE                           /01180801/ [Concomitant]
     Indication: EMERGENCY CARE
     Dosage: UNK
     Dates: start: 20170218, end: 20170218
  45. SODIUM CHLORIDE. [Concomitant]
     Active Substance: SODIUM CHLORIDE
     Dosage: UNK
     Dates: start: 20170224, end: 20170224
  46. POTASSIUM PHOSPHATES [Concomitant]
     Active Substance: POTASSIUM PHOSPHATE, DIBASIC\POTASSIUM PHOSPHATE, MONOBASIC
     Dosage: UNK
     Dates: start: 20170221, end: 20170221
  47. POTASSIUM CHLORIDE W/SODIUM BICARBONATE [Concomitant]
     Indication: HYPOKALAEMIA
     Dosage: UNK
     Dates: start: 20170211, end: 20170211

REACTIONS (2)
  - Hypoxia [Recovered/Resolved with Sequelae]
  - Pancytopenia [Recovered/Resolved with Sequelae]

NARRATIVE: CASE EVENT DATE: 20170224
